FAERS Safety Report 5295276-5 (Version None)
Quarter: 2007Q2

REPORT INFORMATION
  Report Type: 
  Country: None (occurrence: None)
  Receive Date: 20070412
  Receipt Date: 20070401
  Transmission Date: 20071010
  Serious: Yes (Other)
  Sender: FDA-Public Use
  Company Number: PL-PFIZER INC-2007026341

PATIENT
  Age: 75 Year
  Sex: Female

DRUGS (1)
  1. NEURONTIN [Suspect]
     Indication: NEURALGIA
     Dosage: DAILY DOSE:100MG
     Route: 048

REACTIONS (2)
  - CHEST DISCOMFORT [None]
  - PALPITATIONS [None]
